FAERS Safety Report 14541668 (Version 1)
Quarter: 2018Q1

REPORT INFORMATION
  Report Type: Spontaneous
  Country: ES (occurrence: ES)
  Receive Date: 20180216
  Receipt Date: 20180216
  Transmission Date: 20180509
  Serious: Yes (Other)
  Sender: FDA-Public Use
  Company Number: ES-MYLANLABS-2018M1010519

PATIENT
  Age: 51 Year
  Sex: Male

DRUGS (3)
  1. LINEZOLID. [Suspect]
     Active Substance: LINEZOLID
     Dosage: DEFINITIVE TREATMENT
     Route: 065
  2. AMIKACIN [Suspect]
     Active Substance: AMIKACIN
     Indication: BRAIN ABSCESS
     Dosage: DEFINITIVE TREATMENT
     Route: 065
  3. LINEZOLID. [Suspect]
     Active Substance: LINEZOLID
     Indication: BRAIN ABSCESS
     Dosage: EMPIRICAL TREATMENT (AT UNSPECIFIED DOSE), LATER CHANGED TO DEFINITIVE TREATMENT
     Route: 065

REACTIONS (1)
  - Ototoxicity [Unknown]
